FAERS Safety Report 5087034-1 (Version None)
Quarter: 2006Q3

REPORT INFORMATION
  Report Type: 
  Country: None (occurrence: None)
  Receive Date: 20060821
  Receipt Date: 20060801
  Transmission Date: 20061208
  Serious: Yes (Other)
  Sender: FDA-Public Use
  Company Number: VNL_0180_2006

PATIENT
  Age: 70 Year
  Sex: Male
  Weight: 98.4306 kg

DRUGS (4)
  1. APOKYN [Suspect]
     Indication: PARKINSON'S DISEASE
     Dosage: 0.3 ML BID SC
     Route: 058
     Dates: end: 20060803
  2. REQUIP [Concomitant]
  3. STERLETO [Concomitant]
  4. ATIVAN [Concomitant]

REACTIONS (6)
  - ABNORMAL BEHAVIOUR [None]
  - FATIGUE [None]
  - HALLUCINATION [None]
  - HOT FLUSH [None]
  - INCORRECT DOSE ADMINISTERED [None]
  - JOINT LOCK [None]
